FAERS Safety Report 5569790-9 (Version None)
Quarter: 2007Q4

REPORT INFORMATION
  Report Type: 
  Country: None (occurrence: None)
  Receive Date: 20071218
  Receipt Date: 20071203
  Transmission Date: 20080405
  Serious: Yes (Death)
  Sender: FDA-Public Use
  Company Number: MK-6032327

PATIENT
  Age: 23 Year
  Sex: Male
  Weight: 106 kg

DRUGS (18)
  1. TEMAZEPAM [Suspect]
     Indication: DRUG USE FOR UNKNOWN INDICATION
     Dates: start: 20051230
  2. CYCLIZINE (CYCLIZINE) [Suspect]
     Indication: DRUG USE FOR UNKNOWN INDICATION
  3. FENTANYL [Suspect]
     Indication: ANALGESIA
     Dosage: 50 IU;/HR; TRANSDERMAL; /HR, TRANSDERMAL; 2 1 HOUR; TRANSDERMAL
     Route: 062
     Dates: start: 20051225
  4. FENTANYL [Suspect]
     Indication: CROHN'S DISEASE
     Dosage: 50 IU;/HR; TRANSDERMAL; /HR, TRANSDERMAL; 2 1 HOUR; TRANSDERMAL
     Route: 062
     Dates: start: 20051225
  5. FENTANYL [Suspect]
     Indication: HEADACHE
     Dosage: 50 IU;/HR; TRANSDERMAL; /HR, TRANSDERMAL; 2 1 HOUR; TRANSDERMAL
     Route: 062
     Dates: start: 20051225
  6. FENTANYL [Suspect]
     Indication: ANALGESIA
     Dosage: 50 IU;/HR; TRANSDERMAL; /HR, TRANSDERMAL; 2 1 HOUR; TRANSDERMAL
     Route: 062
     Dates: start: 20051229
  7. FENTANYL [Suspect]
     Indication: CROHN'S DISEASE
     Dosage: 50 IU;/HR; TRANSDERMAL; /HR, TRANSDERMAL; 2 1 HOUR; TRANSDERMAL
     Route: 062
     Dates: start: 20051229
  8. FENTANYL [Suspect]
     Indication: HEADACHE
     Dosage: 50 IU;/HR; TRANSDERMAL; /HR, TRANSDERMAL; 2 1 HOUR; TRANSDERMAL
     Route: 062
     Dates: start: 20051229
  9. FENTANYL [Suspect]
     Indication: ANALGESIA
     Dosage: 50 IU;/HR; TRANSDERMAL; /HR, TRANSDERMAL; 2 1 HOUR; TRANSDERMAL
     Route: 062
     Dates: start: 20051230
  10. FENTANYL [Suspect]
     Indication: CROHN'S DISEASE
     Dosage: 50 IU;/HR; TRANSDERMAL; /HR, TRANSDERMAL; 2 1 HOUR; TRANSDERMAL
     Route: 062
     Dates: start: 20051230
  11. FENTANYL [Suspect]
     Indication: HEADACHE
     Dosage: 50 IU;/HR; TRANSDERMAL; /HR, TRANSDERMAL; 2 1 HOUR; TRANSDERMAL
     Route: 062
     Dates: start: 20051230
  12. CHLORPHENIRAMINE MALEATE [Suspect]
     Dates: start: 20051230
  13. AMITRIPTYLINE HCL [Concomitant]
  14. PARACETAMOL [Concomitant]
  15. TRAMADOL HCL [Concomitant]
  16. DIAZEPAM [Concomitant]
  17. ORAMORPH SR [Concomitant]
  18. PREDFOAM [Concomitant]

REACTIONS (14)
  - AMNESIA [None]
  - ANXIETY [None]
  - CHILLS [None]
  - DRUG TOXICITY [None]
  - DRY MOUTH [None]
  - DYSARTHRIA [None]
  - DYSPNOEA [None]
  - HEADACHE [None]
  - HYPERSENSITIVITY [None]
  - MUSCULOSKELETAL STIFFNESS [None]
  - PHOTOPHOBIA [None]
  - PNEUMONIA [None]
  - PRURITUS [None]
  - VISION BLURRED [None]
